FAERS Safety Report 21489115 (Version 1)
Quarter: 2022Q4

REPORT INFORMATION
  Report Type: Report from Study
  Country: CA (occurrence: CA)
  Receive Date: 20221021
  Receipt Date: 20221021
  Transmission Date: 20230113
  Serious: Yes (Congenital Anomaly, Other)
  Sender: FDA-Public Use
  Company Number: CA-NOVARTISPH-NVSC2022CA233430

PATIENT
  Age: 23 Year
  Sex: Female
  Weight: 71.3 kg

DRUGS (2)
  1. DABRAFENIB [Suspect]
     Active Substance: DABRAFENIB
     Indication: Brain neoplasm
     Dosage: 150 MG, BID
     Route: 048
     Dates: start: 20210812
  2. TRAMETINIB [Suspect]
     Active Substance: TRAMETINIB
     Indication: Brain neoplasm
     Dosage: 2 MG, QD
     Route: 048
     Dates: start: 20210812

REACTIONS (3)
  - Abortion spontaneous [Recovered/Resolved]
  - Abdominal pain [Unknown]
  - Pregnancy with contraceptive device [Unknown]

NARRATIVE: CASE EVENT DATE: 20220921
